FAERS Safety Report 24816133 (Version 2)
Quarter: 2025Q1

REPORT INFORMATION
  Report Type: Report from Study
  Country: CA (occurrence: CA)
  Receive Date: 20250107
  Receipt Date: 20250120
  Transmission Date: 20250409
  Serious: Yes (Other)
  Sender: TAKEDA
  Company Number: CA-TAKEDA-2025TUS001880

PATIENT
  Sex: Female

DRUGS (8)
  1. VEDOLIZUMAB [Suspect]
     Active Substance: VEDOLIZUMAB
     Indication: Crohn^s disease
  2. PANTOPRAZOLE SODIUM [Suspect]
     Active Substance: PANTOPRAZOLE SODIUM
     Indication: Product used for unknown indication
  3. VITAMIN D [Concomitant]
     Active Substance: VITAMIN D NOS
  4. Cortiment [Concomitant]
  5. ESOMEPRAZOLE [Concomitant]
     Active Substance: ESOMEPRAZOLE
  6. RANITIDINE [Concomitant]
     Active Substance: RANITIDINE
  7. PERINDOPRIL [Concomitant]
     Active Substance: PERINDOPRIL
  8. VAGIFEM [Concomitant]
     Active Substance: ESTRADIOL

REACTIONS (1)
  - Cholelithiasis [Unknown]
